FAERS Safety Report 5116149-4 (Version None)
Quarter: 2006Q3

REPORT INFORMATION
  Report Type: 
  Country: None (occurrence: None)
  Receive Date: 20060927
  Receipt Date: 20060619
  Transmission Date: 20061208
  Serious: No
  Sender: FDA-Public Use
  Company Number: US-BRISTOL-MYERS SQUIBB COMPANY-13418660

PATIENT
  Age: 66 Year
  Sex: Female
  Weight: 73 kg

DRUGS (6)
  1. DEFINITY [Suspect]
     Route: 040
     Dates: start: 20060615
  2. AVALIDE [Concomitant]
  3. METOCLOPRAMIDE [Concomitant]
  4. NEXIUM [Concomitant]
  5. SYNTHROID [Concomitant]
  6. ZETIA [Concomitant]

REACTIONS (1)
  - VOMITING [None]
